APPROVED DRUG PRODUCT: DESONIDE
Active Ingredient: DESONIDE
Strength: 0.05%
Dosage Form/Route: OINTMENT;TOPICAL
Application: A074254 | Product #001 | TE Code: AB
Applicant: SUN PHARMA CANADA INC
Approved: Aug 3, 1994 | RLD: No | RS: No | Type: RX